FAERS Safety Report 8935869 (Version 3)
Quarter: 2013Q1

REPORT INFORMATION
  Report Type: Spontaneous
  Country: FR (occurrence: FR)
  Receive Date: 20121130
  Receipt Date: 20130211
  Transmission Date: 20140127
  Serious: Yes (Hospitalization)
  Sender: FDA-Public Use
  Company Number: FR-JNJFOC-20121102130

PATIENT
  Age: 66 Year
  Sex: Female

DRUGS (18)
  1. IXPRIM [Suspect]
     Indication: POST HERPETIC NEURALGIA
     Route: 048
     Dates: start: 20120810, end: 20120814
  2. ZELITREX [Suspect]
     Indication: POST HERPETIC NEURALGIA
     Route: 048
     Dates: start: 20120806, end: 20120819
  3. LYRICA [Suspect]
     Indication: PRODUCT USED FOR UNKNOWN INDICATION
     Dosage: 25-50-50 MG/D
     Route: 048
     Dates: start: 20120810, end: 20120814
  4. LYRICA [Suspect]
     Indication: PRODUCT USED FOR UNKNOWN INDICATION
     Route: 048
     Dates: start: 20120806, end: 20120810
  5. TEGRETOL LP [Suspect]
     Indication: PRODUCT USED FOR UNKNOWN INDICATION
     Route: 048
     Dates: start: 20120814, end: 20120819
  6. ACUPAN [Suspect]
     Indication: PRODUCT USED FOR UNKNOWN INDICATION
     Route: 048
     Dates: start: 20120806, end: 20120810
  7. XANAX [Concomitant]
     Indication: PRODUCT USED FOR UNKNOWN INDICATION
     Route: 048
     Dates: start: 20120810, end: 20120819
  8. PARACETAMOL [Concomitant]
     Indication: PAIN
     Route: 065
     Dates: start: 20120821
  9. TOPALGIC [Concomitant]
     Indication: PAIN
     Route: 048
     Dates: start: 20120821
  10. PRAVASTATIN [Concomitant]
     Indication: PRODUCT USED FOR UNKNOWN INDICATION
     Route: 048
  11. SOTALOL [Concomitant]
     Indication: PRODUCT USED FOR UNKNOWN INDICATION
     Route: 048
  12. SPAGULAX [Concomitant]
     Indication: PRODUCT USED FOR UNKNOWN INDICATION
     Route: 048
  13. STILNOX [Concomitant]
     Indication: PRODUCT USED FOR UNKNOWN INDICATION
     Route: 048
     Dates: end: 20120818
  14. LANZOR [Concomitant]
     Indication: PRODUCT USED FOR UNKNOWN INDICATION
     Route: 048
  15. VALIUM [Concomitant]
     Indication: PAIN
     Route: 048
     Dates: start: 20120821
  16. VERSATIS [Concomitant]
     Indication: PAIN
     Route: 061
     Dates: start: 20120821
  17. FLUOXETINE [Concomitant]
     Indication: PRODUCT USED FOR UNKNOWN INDICATION
     Route: 048
  18. LAROXYL [Concomitant]
     Indication: PAIN
     Route: 048
     Dates: start: 20120821

REACTIONS (5)
  - Hepatocellular injury [Recovering/Resolving]
  - Vomiting [Recovered/Resolved]
  - Decreased appetite [Recovered/Resolved]
  - Hyponatraemia [Recovered/Resolved]
  - Nausea [Recovered/Resolved]
